FAERS Safety Report 13089154 (Version 1)
Quarter: 2017Q1

REPORT INFORMATION
  Report Type: Spontaneous
  Country: GB (occurrence: GB)
  Receive Date: 20170105
  Receipt Date: 20170105
  Transmission Date: 20170428
  Serious: Yes (Hospitalization, Other)
  Sender: FDA-Public Use
  Company Number: GB-BAXTER-2016BAX065472

PATIENT
  Age: 51 Year
  Sex: Female

DRUGS (17)
  1. DEXAMETHASONE. [Suspect]
     Active Substance: DEXAMETHASONE
     Indication: PLASMA CELL MYELOMA
     Dosage: 20MG/40MG DAILY FOR 4 DAYS
     Route: 048
  2. ACICLOVIR [Concomitant]
     Active Substance: ACYCLOVIR
     Indication: PRODUCT USED FOR UNKNOWN INDICATION
     Route: 048
  3. ZOLEDRONATE [Suspect]
     Active Substance: ZOLEDRONIC ACID
     Indication: PLASMA CELL MYELOMA
     Route: 065
  4. DEXAMETHASONE. [Suspect]
     Active Substance: DEXAMETHASONE
     Dosage: DOSE WAS REDUCED
     Route: 048
  5. DOMPERIDONE [Concomitant]
     Active Substance: DOMPERIDONE
     Indication: PRODUCT USED FOR UNKNOWN INDICATION
     Route: 048
  6. THALIDOMIDE [Suspect]
     Active Substance: THALIDOMIDE
     Indication: PLASMA CELL MYELOMA
     Dosage: AFTER COMPLETION OF TREATMENT WITH 50MG ON ALTERNATIVE DAYS FOR 2 WEEKS IN CYCLE-2
     Route: 048
  7. THALIDOMIDE [Suspect]
     Active Substance: THALIDOMIDE
     Dosage: 50MG ALTERNATIVE DAYS FOR 2 WEEKS IN CYCLE-2, RESTARTED
     Route: 048
  8. COTRIMOXAZOLE [Suspect]
     Active Substance: SULFAMETHOXAZOLE\TRIMETHOPRIM
     Indication: PRODUCT USED FOR UNKNOWN INDICATION
     Route: 048
  9. FLUCONAZOLE. [Concomitant]
     Active Substance: FLUCONAZOLE
     Indication: PRODUCT USED FOR UNKNOWN INDICATION
     Route: 048
  10. OMEPRAZOLE. [Concomitant]
     Active Substance: OMEPRAZOLE
     Indication: PRODUCT USED FOR UNKNOWN INDICATION
     Route: 065
  11. PYRIMETHAMINE [Concomitant]
     Active Substance: PYRIMETHAMINE
     Indication: PRODUCT USED FOR UNKNOWN INDICATION
     Dosage: 5000 UNITS
     Route: 058
  12. DELTAPRIM [Concomitant]
     Indication: PRODUCT USED FOR UNKNOWN INDICATION
     Route: 065
  13. CYCLOPHOSPHAMIDE TABLETS 50 MG [Suspect]
     Active Substance: CYCLOPHOSPHAMIDE
     Indication: PLASMA CELL MYELOMA
     Route: 048
  14. THALIDOMIDE [Suspect]
     Active Substance: THALIDOMIDE
     Dosage: AFTER COMPLETION OF TREATMENT WITH 50MG ON ALTERNATIVE DAYS FOR 2 WEEKS IN CYCLE-2
     Route: 048
  15. ALLOPURINOL. [Concomitant]
     Active Substance: ALLOPURINOL
     Indication: PRODUCT USED FOR UNKNOWN INDICATION
     Route: 048
  16. THALIDOMIDE [Suspect]
     Active Substance: THALIDOMIDE
     Route: 048
  17. ONDANSETRON [Concomitant]
     Active Substance: ONDANSETRON
     Indication: PRODUCT USED FOR UNKNOWN INDICATION
     Route: 048

REACTIONS (15)
  - Mass [Unknown]
  - Chest pain [Unknown]
  - Pain [Unknown]
  - Influenza like illness [Unknown]
  - Haemorrhoids [Unknown]
  - Constipation [Unknown]
  - Peripheral sensory neuropathy [Unknown]
  - Flushing [Unknown]
  - Urinary retention [Unknown]
  - Bone lesion [Unknown]
  - Lower respiratory tract infection [Unknown]
  - Musculoskeletal chest pain [Unknown]
  - Rash generalised [Unknown]
  - Tremor [Unknown]
  - Hyperhidrosis [Unknown]
